FAERS Safety Report 5618337-7 (Version None)
Quarter: 2008Q1

REPORT INFORMATION
  Report Type: 
  Country: None (occurrence: None)
  Receive Date: 20080205
  Receipt Date: 20080205
  Transmission Date: 20080703
  Serious: Yes (Other)
  Sender: FDA-Public Use
  Company Number: None

PATIENT
  Age: 41 Year
  Sex: Female
  Weight: 86.637 kg

DRUGS (1)
  1. CHANTIX [Suspect]
     Indication: SMOKING CESSATION THERAPY
     Dosage: 1MG  TWICE DAILY
     Dates: start: 20071204, end: 20080204

REACTIONS (4)
  - ANGER [None]
  - EMOTIONAL DISORDER [None]
  - JOB DISSATISFACTION [None]
  - PARANOIA [None]
